FAERS Safety Report 4649650-8 (Version None)
Quarter: 2005Q2

REPORT INFORMATION
  Report Type: 
  Country: None (occurrence: None)
  Receive Date: 20050502
  Receipt Date: 20050422
  Transmission Date: 20051028
  Serious: Yes (Hospitalization)
  Sender: FDA-Public Use
  Company Number: FR-BRISTOL-MYERS SQUIBB COMPANY-12949368

PATIENT
  Age: 56 Year
  Sex: Male
  Weight: 85 kg

DRUGS (10)
  1. ENDOXAN [Suspect]
     Indication: WEGENER'S GRANULOMATOSIS
     Route: 048
     Dates: start: 20050202, end: 20050202
  2. IMUREL [Suspect]
     Indication: WEGENER'S GRANULOMATOSIS
     Route: 048
     Dates: start: 20050301
  3. BACTRIM [Suspect]
     Indication: WEGENER'S GRANULOMATOSIS
     Route: 048
     Dates: start: 20030201
  4. ZYLORIC [Concomitant]
     Dates: start: 20041001
  5. FOSAMAX [Concomitant]
  6. OROCAL D3 [Concomitant]
  7. TAHOR [Concomitant]
  8. TRIATEC [Concomitant]
  9. PREDNISONE [Concomitant]
  10. HYDROCORTISONE [Concomitant]

REACTIONS (5)
  - C-REACTIVE PROTEIN INCREASED [None]
  - EOSINOPHILIA [None]
  - MYELODYSPLASTIC SYNDROME [None]
  - PANCYTOPENIA [None]
  - PYREXIA [None]
